FAERS Safety Report 9126296 (Version 1)
Quarter: 2013Q1

REPORT INFORMATION
  Report Type: Spontaneous
  Country: US (occurrence: US)
  Receive Date: 20130117
  Receipt Date: 20130117
  Transmission Date: 20140127
  Serious: Yes (Death)
  Sender: FDA-Public Use
  Company Number: US-GLAXOSMITHKLINE-A1008742A

PATIENT
  Age: 70 Year
  Sex: Male

DRUGS (3)
  1. ADVAIR [Suspect]
     Indication: PRODUCT USED FOR UNKNOWN INDICATION
     Route: 055
     Dates: start: 20110617, end: 20130104
  2. AVODART [Suspect]
     Indication: PRODUCT USED FOR UNKNOWN INDICATION
     Dosage: .5MG UNKNOWN
     Route: 048
     Dates: start: 20110617, end: 20130104
  3. CONCURRENT MEDICATIONS [Concomitant]

REACTIONS (2)
  - Pneumonia [Fatal]
  - Acute myeloid leukaemia [Fatal]
